FAERS Safety Report 8243263-7 (Version None)
Quarter: 2012Q1

REPORT INFORMATION
  Report Type: 
  Country: None (occurrence: None)
  Receive Date: 20120329
  Receipt Date: 20120326
  Transmission Date: 20120608
  Serious: Yes (Hospitalization)
  Sender: FDA-Public Use
  Company Number: ES-ROCHE-1023206

PATIENT
  Sex: Male

DRUGS (6)
  1. ACTEMRA [Suspect]
     Indication: RHEUMATOID ARTHRITIS
     Route: 042
     Dates: start: 20101110
  2. ATORVASTATIN [Concomitant]
     Route: 048
  3. PREDNISONE TAB [Concomitant]
     Indication: RHEUMATOID ARTHRITIS
     Route: 048
  4. LEVOTHYROXINE SODIUM [Concomitant]
     Route: 048
  5. EPOETIN [Concomitant]
     Indication: ANAEMIA
  6. SEVELAMER [Concomitant]
     Indication: RENAL FAILURE CHRONIC
     Route: 048

REACTIONS (1)
  - PYREXIA [None]
